FAERS Safety Report 4866361-4 (Version None)
Quarter: 2005Q4

REPORT INFORMATION
  Report Type: 
  Country: None (occurrence: None)
  Receive Date: 20051221
  Receipt Date: 20051205
  Transmission Date: 20060501
  Serious: Yes (Hospitalization)
  Sender: FDA-Public Use
  Company Number: 2005002325

PATIENT
  Age: 59 Year
  Sex: Female

DRUGS (3)
  1. TARCEVA [Suspect]
     Indication: OVARIAN CANCER
     Dosage: 150 M G (QD), ORAL
     Route: 048
     Dates: end: 20050901
  2. DIGOXIN [Concomitant]
  3. WARFARIN (WARFARIN) [Concomitant]

REACTIONS (3)
  - DEHYDRATION [None]
  - DRUG INTERACTION [None]
  - NAUSEA [None]
